FAERS Safety Report 5624213-6 (Version None)
Quarter: 2008Q1

REPORT INFORMATION
  Report Type: 
  Country: None (occurrence: None)
  Receive Date: 20080213
  Receipt Date: 20080130
  Transmission Date: 20080703
  Serious: Yes (Hospitalization)
  Sender: FDA-Public Use
  Company Number: GB-SOLVAY-00208000586

PATIENT
  Age: 54 Year
  Sex: Male
  Weight: 85 kg

DRUGS (1)
  1. PERINDOPRIL [Suspect]
     Indication: HYPERTENSION
     Dosage: DAILY DOSE: 4 MILLIGRAM(S)
     Route: 048
     Dates: start: 20070401, end: 20080104

REACTIONS (2)
  - HAEMOPTYSIS [None]
  - RHABDOMYOLYSIS [None]
